FAERS Safety Report 11693286 (Version 1)
Quarter: 2015Q4

REPORT INFORMATION
  Report Type: Spontaneous
  Country: US (occurrence: None)
  Receive Date: 20151102
  Receipt Date: 20151102
  Transmission Date: 20160304
  Serious: Yes (Other)
  Sender: FDA-Public Use
  Company Number: None

PATIENT
  Age: 46 Year
  Sex: Female
  Weight: 64.86 kg

DRUGS (1)
  1. MYDRIACYL [Suspect]
     Active Substance: TROPICAMIDE
     Indication: EYE DISORDER
     Dates: start: 20151002, end: 20151002

REACTIONS (8)
  - Eye disorder [None]
  - Photopsia [None]
  - Muscle twitching [None]
  - Eye irritation [None]
  - Capillary disorder [None]
  - Eye pain [None]
  - Ocular hyperaemia [None]
  - Condition aggravated [None]

NARRATIVE: CASE EVENT DATE: 20151002
